FAERS Safety Report 7406613-7 (Version None)
Quarter: 2011Q2

REPORT INFORMATION
  Report Type: 
  Country: None (occurrence: None)
  Receive Date: 20110411
  Receipt Date: 20110330
  Transmission Date: 20111010
  Serious: Yes (Hospitalization, Other)
  Sender: FDA-Public Use
  Company Number: DE-SANOFI-AVENTIS-2011SA016072

PATIENT
  Age: 73 Year
  Sex: Male

DRUGS (10)
  1. FLUOROURACIL [Suspect]
     Route: 041
     Dates: start: 20110222, end: 20110222
  2. MOVIPREP [Concomitant]
     Route: 065
     Dates: start: 20101201, end: 20110315
  3. OXALIPLATIN [Suspect]
     Route: 041
     Dates: start: 20110222, end: 20110222
  4. CETUXIMAB [Suspect]
     Route: 041
     Dates: start: 20110308, end: 20110308
  5. SODIUM PICOSULFATE [Concomitant]
     Route: 065
     Dates: start: 20101201, end: 20110315
  6. FLUOROURACIL [Suspect]
     Route: 041
     Dates: start: 20110308, end: 20110308
  7. FOLINIC ACID [Suspect]
     Route: 041
     Dates: start: 20110308, end: 20110308
  8. OXALIPLATIN [Suspect]
     Route: 041
     Dates: start: 20110308, end: 20110308
  9. CETUXIMAB [Suspect]
     Route: 041
     Dates: start: 20110222, end: 20110222
  10. FOLINIC ACID [Suspect]
     Route: 041
     Dates: start: 20110222, end: 20110222

REACTIONS (8)
  - URINARY RETENTION [None]
  - CALCULUS URINARY [None]
  - ABDOMINAL PAIN [None]
  - HYPOKALAEMIA [None]
  - DIARRHOEA [None]
  - INFECTION [None]
  - PYREXIA [None]
  - RENAL COLIC [None]
